FAERS Safety Report 5648439-0 (Version None)
Quarter: 2008Q1

REPORT INFORMATION
  Report Type: 
  Country: None (occurrence: None)
  Receive Date: 20080303
  Receipt Date: 20080303
  Transmission Date: 20080703
  Serious: Yes (Hospitalization)
  Sender: FDA-Public Use
  Company Number: None

PATIENT
  Age: 68 Year
  Sex: Male
  Weight: 85.5 kg

DRUGS (2)
  1. NOVOLOG [Suspect]
     Indication: MEDICATION ERROR
     Dosage: 2 UNITS 1X SQ
     Route: 058
     Dates: start: 20071013, end: 20071013
  2. GLUCOPHAGE [Suspect]
     Dosage: 500MG BID PO
     Route: 048

REACTIONS (3)
  - DRUG PRESCRIBING ERROR [None]
  - MEDICATION ERROR [None]
  - WRONG DRUG ADMINISTERED [None]
